FAERS Safety Report 21837818 (Version 1)
Quarter: 2023Q1

REPORT INFORMATION
  Report Type: Spontaneous
  Country: US (occurrence: None)
  Receive Date: 20230107
  Receipt Date: 20230107
  Transmission Date: 20230418
  Serious: Yes (Hospitalization, Disabling)
  Sender: FDA-Public Use
  Company Number: None

PATIENT
  Age: 44 Year
  Sex: Female

DRUGS (5)
  1. SETLAKIN [Suspect]
     Active Substance: ETHINYL ESTRADIOL\LEVONORGESTREL
     Indication: Premenstrual syndrome
     Dosage: OTHER QUANTITY : 91 TABLET(S);?FREQUENCY : AT BEDTIME;?
     Route: 048
     Dates: start: 20221218, end: 20221230
  2. SETLAKIN [Suspect]
     Active Substance: ETHINYL ESTRADIOL\LEVONORGESTREL
     Indication: Premenstrual dysphoric disorder
  3. Wellbutrin xl [Concomitant]
  4. MAGNESIUM GLYCINATE [Concomitant]
     Active Substance: MAGNESIUM GLYCINATE
  5. DOXEPIN [Concomitant]
     Active Substance: DOXEPIN

REACTIONS (6)
  - Uterine leiomyoma [None]
  - Teratoma [None]
  - Nausea [None]
  - Headache [None]
  - Abdominal distension [None]
  - Vaginal haemorrhage [None]

NARRATIVE: CASE EVENT DATE: 20221227
